FAERS Safety Report 4379600-3 (Version None)
Quarter: 2004Q2

REPORT INFORMATION
  Report Type: 
  Country: None (occurrence: None)
  Receive Date: 20040414
  Receipt Date: 20040209
  Transmission Date: 20050107
  Serious: No
  Sender: FDA-Public Use
  Company Number: 2004S1000026

PATIENT
  Age: 80 Year
  Sex: Female
  Weight: 60 kg

DRUGS (12)
  1. CUBICIN [Suspect]
     Indication: CELLULITIS STAPHYLOCOCCAL
     Dosage: 240 MG; QD; IV
     Route: 042
     Dates: start: 20040206
  2. MERREM [Concomitant]
  3. DIFLUCAN [Concomitant]
  4. ZESTRIL [Concomitant]
  5. NORVASC [Concomitant]
  6. SYNTHROID [Concomitant]
  7. AMBIEN [Concomitant]
  8. ZANTAC [Concomitant]
  9. TYLENOL [Concomitant]
  10. VICODIN [Concomitant]
  11. DEMEROL [Concomitant]
  12. LORTAB [Concomitant]

REACTIONS (2)
  - PYREXIA [None]
  - RASH ERYTHEMATOUS [None]
